FAERS Safety Report 18570011 (Version 1)
Quarter: 2020Q4

REPORT INFORMATION
  Report Type: Spontaneous
  Country: US (occurrence: US)
  Receive Date: 20201202
  Receipt Date: 20201202
  Transmission Date: 20210114
  Serious: No
  Sender: FDA-Public Use
  Company Number: None

PATIENT
  Age: 76 Year
  Sex: Female
  Weight: 90.9 kg

DRUGS (9)
  1. MYRBETRIQ [Suspect]
     Active Substance: MIRABEGRON
     Indication: INCONTINENCE
     Route: 048
  2. ASPIRIN 81MG [Concomitant]
     Active Substance: ASPIRIN
  3. PANTOPRAZOLE [Concomitant]
     Active Substance: PANTOPRAZOLE
  4. B6 [Concomitant]
     Active Substance: PYRIDOXINE HYDROCHLORIDE
  5. IRON [Concomitant]
     Active Substance: IRON
  6. LOSARTAN. [Concomitant]
     Active Substance: LOSARTAN
  7. ATORVASTATIN [Concomitant]
     Active Substance: ATORVASTATIN
  8. DONEPEZIL. [Concomitant]
     Active Substance: DONEPEZIL
  9. POTASSIUM [Concomitant]
     Active Substance: POTASSIUM

REACTIONS (2)
  - Road traffic accident [None]
  - Vision blurred [None]

NARRATIVE: CASE EVENT DATE: 20200915
